FAERS Safety Report 22102453 (Version 1)
Quarter: 2023Q1

REPORT INFORMATION
  Report Type: Other
  Country: AU (occurrence: AU)
  Receive Date: 20230316
  Receipt Date: 20230316
  Transmission Date: 20230418
  Serious: Yes (Other)
  Sender: FDA-Public Use
  Company Number: AU-CELLTRION INC.-2023AU005052

PATIENT

DRUGS (1)
  1. INFLIXIMAB [Suspect]
     Active Substance: INFLIXIMAB
     Indication: Product used for unknown indication

REACTIONS (6)
  - Leukopenia [Unknown]
  - Iron deficiency [Unknown]
  - Anaemia [Unknown]
  - Diarrhoea [Unknown]
  - Drug ineffective [Unknown]
  - Off label use [Unknown]
